FAERS Safety Report 21601167 (Version 1)
Quarter: 2022Q4

REPORT INFORMATION
  Report Type: Other
  Country: GB (occurrence: GB)
  Receive Date: 20221116
  Receipt Date: 20221116
  Transmission Date: 20230113
  Serious: No
  Sender: FDA-Public Use
  Company Number: None

PATIENT
  Age: 19 Year
  Sex: Male
  Weight: 24 kg

DRUGS (5)
  1. SERTRALINE [Suspect]
     Active Substance: SERTRALINE HYDROCHLORIDE
     Indication: Ill-defined disorder
     Dosage: 0.5 DOSAGE FORM (HALF TABLET FOR ONE WEEK AND THEN ONCE A DAY
     Route: 065
     Dates: start: 20221003, end: 20221031
  2. SERTRALINE [Suspect]
     Active Substance: SERTRALINE HYDROCHLORIDE
     Dosage: UNK
     Route: 065
     Dates: start: 20221101
  3. ESCITALOPRAM [Concomitant]
     Active Substance: ESCITALOPRAM OXALATE
     Indication: Ill-defined disorder
     Dosage: 1 DOSAGE FORM (TABLET), QD
     Route: 065
     Dates: start: 20221017
  4. PROCHLORPERAZINE [Concomitant]
     Active Substance: PROCHLORPERAZINE
     Indication: Ill-defined disorder
     Dosage: 1 DOSAGE FORM (TABLET), TID (FOR 2-4 WEEKS)
     Route: 065
     Dates: start: 20220830, end: 20220831
  5. ZOPICLONE [Concomitant]
     Active Substance: ZOPICLONE
     Indication: Ill-defined disorder
     Dosage: UNK, (TAKE ONE OR UP TO TWO AT NIGHT)
     Route: 065
     Dates: start: 20221017, end: 20221024

REACTIONS (1)
  - Vertigo [Recovered/Resolved]

NARRATIVE: CASE EVENT DATE: 20221101
